FAERS Safety Report 4815160-8 (Version None)
Quarter: 2005Q4

REPORT INFORMATION
  Report Type: 
  Country: None (occurrence: None)
  Receive Date: 20051027
  Receipt Date: 20051015
  Transmission Date: 20060501
  Serious: Yes (Other)
  Sender: FDA-Public Use
  Company Number: 2005141932

PATIENT
  Age: 46 Year
  Sex: Female
  Weight: 83.9154 kg

DRUGS (6)
  1. KAOPECTATE EXTRA STRENGTH (BISMUTH SUBSALICYLATE) [Suspect]
     Indication: DIARRHOEA
     Dosage: 4 TABLESPOONFULS TWICE A DAY PRN, ORAL
     Route: 048
     Dates: start: 20050601, end: 20051016
  2. QUETIAPINE FUMARATE [Concomitant]
  3. TOPIRAMATE [Concomitant]
  4. CHLORDIAZEPOXIDE [Concomitant]
  5. EZETIMIBE (EZETIMIBE) [Concomitant]
  6. PAROXETINE HCL [Concomitant]

REACTIONS (2)
  - COLD SWEAT [None]
  - EPILEPSY [None]
